FAERS Safety Report 12437181 (Version 1)
Quarter: 2016Q2

REPORT INFORMATION
  Report Type: Spontaneous
  Country: None (occurrence: None)
  Receive Date: 20160603
  Receipt Date: 20160603
  Transmission Date: 20160815
  Serious: No
  Sender: FDA-Public Use
  Company Number: None

PATIENT
  Age: 62 Year
  Sex: Male
  Weight: 104.33 kg

DRUGS (1)
  1. JAKAFI [Suspect]
     Active Substance: RUXOLITINIB
     Indication: POLYCYTHAEMIA VERA
     Route: 048

REACTIONS (9)
  - Dizziness [None]
  - Weight increased [None]
  - Drug ineffective [None]
  - Head discomfort [None]
  - Headache [None]
  - Flatulence [None]
  - Disturbance in attention [None]
  - Blood pressure systolic increased [None]
  - Abdominal distension [None]

NARRATIVE: CASE EVENT DATE: 20160410
